FAERS Safety Report 10975387 (Version 2)
Quarter: 2015Q4

REPORT INFORMATION
  Report Type: Spontaneous
  Country: CH (occurrence: CH)
  Receive Date: 20150401
  Receipt Date: 20151221
  Transmission Date: 20160304
  Serious: Yes (Hospitalization, Other)
  Sender: FDA-Public Use
  Company Number: CH-GLAXOSMITHKLINE-CH2015039267

PATIENT
  Age: 48 Year
  Sex: Female

DRUGS (10)
  1. ELEUTHEROCOCCUS SENTICOSUS EXTRACT [Suspect]
     Active Substance: ELEUTHERO
     Indication: PRODUCT USED FOR UNKNOWN INDICATION
     Dates: start: 201410, end: 20141224
  2. NASOBOL [Suspect]
     Active Substance: HERBALS
     Indication: PRODUCT USED FOR UNKNOWN INDICATION
     Dates: start: 20141218, end: 20141224
  3. GINKGO [Suspect]
     Active Substance: GINKGO
     Indication: PRODUCT USED FOR UNKNOWN INDICATION
     Dosage: 200 MG, QD
     Dates: start: 201410, end: 20141224
  4. ANGINA MCC [Suspect]
     Active Substance: CETYLPYRIDINIUM CHLORIDE\LEVOMENTHOL\LIDOCAINE HYDROCHLORIDE
     Indication: PRODUCT USED FOR UNKNOWN INDICATION
     Dates: start: 20141218, end: 20141224
  5. SINUPRET [Suspect]
     Active Substance: HERBALS
     Indication: PRODUCT USED FOR UNKNOWN INDICATION
     Dates: start: 20141218, end: 20141224
  6. AXOTIDE [Suspect]
     Active Substance: FLUTICASONE PROPIONATE
     Indication: PRODUCT USED FOR UNKNOWN INDICATION
     Dosage: UNK
     Dates: start: 20141218, end: 20141224
  7. SALVIA OFFICINALIS LEAF [Suspect]
     Active Substance: SAGE
     Indication: PRODUCT USED FOR UNKNOWN INDICATION
     Dates: start: 201410, end: 20141224
  8. CODEIN KNOLL [Suspect]
     Active Substance: CODEINE PHOSPHATE
     Dates: start: 20141218, end: 20141224
  9. CIMICIFUGA [Suspect]
     Active Substance: BLACK COHOSH
     Indication: PRODUCT USED FOR UNKNOWN INDICATION
     Dates: start: 201410, end: 20141224
  10. CRATAEGUS [Suspect]
     Active Substance: HAWTHORN LEAF WITH FLOWER
     Indication: PRODUCT USED FOR UNKNOWN INDICATION
     Dosage: UNK
     Dates: start: 201410, end: 20141224

REACTIONS (5)
  - Pulmonary embolism [Unknown]
  - Ventricular fibrillation [Recovering/Resolving]
  - Seizure [Recovering/Resolving]
  - Cardiac arrest [Recovered/Resolved]
  - Hypokalaemia [Unknown]

NARRATIVE: CASE EVENT DATE: 20141224
